FAERS Safety Report 6192377-4 (Version None)
Quarter: 2009Q2

REPORT INFORMATION
  Report Type: 
  Country: None (occurrence: None)
  Receive Date: 20090518
  Receipt Date: 20070531
  Transmission Date: 20091009
  Serious: Yes (Hospitalization)
  Sender: FDA-Public Use
  Company Number: US-ASTRAZENECA-2006UW22707

PATIENT
  Age: 39 Year
  Sex: Female
  Weight: 169 kg

DRUGS (24)
  1. SEROQUEL [Suspect]
     Indication: MENTAL DISORDER
     Route: 048
     Dates: start: 20030101
  2. SEROQUEL [Suspect]
     Indication: DEPRESSION
     Route: 048
     Dates: start: 20030101
  3. SEROQUEL [Suspect]
     Route: 048
     Dates: start: 20030101
  4. SEROQUEL [Suspect]
     Route: 048
     Dates: start: 20030101
  5. SEROQUEL [Suspect]
     Dosage: 100 MG TO 900 MG
     Route: 048
     Dates: start: 20011231
  6. SEROQUEL [Suspect]
     Dosage: 100 MG TO 900 MG
     Route: 048
     Dates: start: 20011231
  7. PAXIL [Concomitant]
     Route: 065
  8. TRAZODONE HCL [Concomitant]
     Route: 048
  9. EFFEXOR [Concomitant]
     Route: 065
  10. CELEXA [Concomitant]
     Route: 065
  11. AVANDIA [Concomitant]
     Route: 048
  12. NAPROXEN [Concomitant]
     Route: 065
  13. DARVOCET [Concomitant]
     Route: 048
  14. LASIX [Concomitant]
     Dosage: 20-40 MG
     Route: 065
  15. AMBIEN [Concomitant]
     Route: 065
  16. XANAX [Concomitant]
     Route: 065
  17. PROMETHAZINE [Concomitant]
  18. LORCET-HD [Concomitant]
     Route: 065
  19. MEPERIDINE HYDROCHLORIDE [Concomitant]
     Route: 065
  20. HABITROL [Concomitant]
     Route: 065
  21. DIPHENHYDRAMINE HCL [Concomitant]
     Route: 065
  22. COGENTIN [Concomitant]
     Route: 065
  23. GLUCAGON [Concomitant]
     Route: 065
  24. GLIPIZIDE [Concomitant]
     Dosage: 2-5 MG EVERY MORNING
     Route: 048

REACTIONS (16)
  - ABDOMINAL PAIN [None]
  - BACK PAIN [None]
  - CYSTITIS [None]
  - DIABETES MELLITUS [None]
  - DRUG DEPENDENCE [None]
  - HYPERGLYCAEMIA [None]
  - HYPERTENSION [None]
  - HYPOAESTHESIA [None]
  - MUSCULOSKELETAL PAIN [None]
  - NECK PAIN [None]
  - OROPHARYNGEAL PAIN [None]
  - PELVIC PAIN [None]
  - PSYCHOTIC DISORDER [None]
  - PYREXIA [None]
  - SUBSTANCE ABUSER [None]
  - TOBACCO ABUSE [None]
